FAERS Safety Report 9664635 (Version 2)
Quarter: 2013Q4

REPORT INFORMATION
  Report Type: Report from Study
  Country: FR (occurrence: FR)
  Receive Date: 20131101
  Receipt Date: 20131125
  Transmission Date: 20140711
  Serious: Yes (Death)
  Sender: FDA-Public Use
  Company Number: FR-CELGENEUS-056-C4047-13104932

PATIENT
  Age: 54 Year
  Sex: Male

DRUGS (4)
  1. CC-4047 [Suspect]
     Indication: PLASMA CELL MYELOMA
     Dosage: 4 MILLIGRAM
     Route: 048
     Dates: start: 20121206, end: 20130101
  2. KARDEGIC [Concomitant]
     Indication: PLASMA CELL MYELOMA
     Dosage: 75 MILLIGRAM
     Route: 065
     Dates: start: 20121126, end: 20130101
  3. ZELITREX [Concomitant]
     Indication: PLASMA CELL MYELOMA
     Dosage: 1000 MILLIGRAM
     Route: 065
     Dates: start: 20121126, end: 20130101
  4. DEXAMETHASONE [Concomitant]
     Indication: PLASMA CELL MYELOMA
     Dosage: 5.7143 MILLIGRAM
     Route: 065
     Dates: start: 20121206, end: 20130101

REACTIONS (1)
  - Plasma cell myeloma [Fatal]
